FAERS Safety Report 4606501-5 (Version None)
Quarter: 2005Q2

REPORT INFORMATION
  Report Type: 
  Country: None (occurrence: None)
  Receive Date: 20050223
  Receipt Date: 20041015
  Transmission Date: 20051028
  Serious: Yes (Disabling)
  Sender: FDA-Public Use
  Company Number: WAES  0410USA02386

PATIENT
  Age: 57 Year
  Sex: Female

DRUGS (4)
  1. ZOCOR [Suspect]
     Indication: BLOOD CHOLESTEROL INCREASED
     Dosage: 10 MG/DAILY/PO
     Route: 048
     Dates: start: 20030101
  2. DIOVAN [Concomitant]
  3. GLUCOVANCE [Concomitant]
  4. VIOXX [Concomitant]

REACTIONS (1)
  - MYALGIA [None]
